FAERS Safety Report 19574895 (Version 1)
Quarter: 2021Q3

REPORT INFORMATION
  Report Type: Spontaneous
  Country: US (occurrence: US)
  Receive Date: 20210719
  Receipt Date: 20210719
  Transmission Date: 20211014
  Serious: Yes (Hospitalization)
  Sender: FDA-Public Use
  Company Number: US-IGSA-BIG0015239

PATIENT
  Age: 80 Year
  Sex: Female

DRUGS (2)
  1. HUMAN RABIES IMMUNOGLOBULIN [Suspect]
     Active Substance: RABIES IMMUNE GLOBULIN (HUMAN)
     Indication: EXPOSURE TO COMMUNICABLE DISEASE
     Dosage: UNK
  2. RABIES VACCINE [Concomitant]
     Active Substance: RABIES VACCINE
     Indication: EXPOSURE TO COMMUNICABLE DISEASE

REACTIONS (5)
  - Chest pain [Unknown]
  - Electrocardiogram ST-T segment abnormal [Unknown]
  - Systolic dysfunction [Unknown]
  - Pulmonary embolism [Unknown]
  - Hypoxia [Unknown]
